FAERS Safety Report 9511614 (Version 1)
Quarter: 2013Q3

REPORT INFORMATION
  Report Type: Report from Study
  Country: US (occurrence: US)
  Receive Date: 20130910
  Receipt Date: 20130910
  Transmission Date: 20140515
  Serious: Yes (Other)
  Sender: FDA-Public Use
  Company Number: PHEH2013US018784

PATIENT
  Sex: Female

DRUGS (1)
  1. SANDOSTATIN LAR DEPOT [Suspect]
     Indication: NEUROENDOCRINE CARCINOMA
     Dosage: UNK UKN, UNK
     Route: 030

REACTIONS (3)
  - Wound [Unknown]
  - Impaired healing [Unknown]
  - Malignant neoplasm progression [Unknown]
